FAERS Safety Report 12208150 (Version 1)
Quarter: 2016Q1

REPORT INFORMATION
  Report Type: Spontaneous
  Country: US (occurrence: US)
  Receive Date: 20160324
  Receipt Date: 20160324
  Transmission Date: 20160526
  Serious: No
  Sender: FDA-Public Use
  Company Number: US-009507513-1603USA008414

PATIENT
  Age: 68 Year
  Sex: Male

DRUGS (2)
  1. TEMODAR [Suspect]
     Active Substance: TEMOZOLOMIDE
     Dosage: 200 MG/M2 ON DAYS 1-5 IN A 28-DAY CYCLE, CYCLE 2-12
     Route: 048
  2. TEMODAR [Suspect]
     Active Substance: TEMOZOLOMIDE
     Indication: ANAPLASTIC OLIGODENDROGLIOMA
     Dosage: 150 MG/M2 ON DAYS 1-5 IN A 28-DAY CYCLE, CYCLE 1
     Route: 048

REACTIONS (1)
  - Product use issue [Unknown]
